FAERS Safety Report 4278379-3 (Version None)
Quarter: 2004Q1

REPORT INFORMATION
  Report Type: 
  Country: None (occurrence: None)
  Receive Date: 20040123
  Receipt Date: 20040120
  Transmission Date: 20041129
  Serious: Yes (Other)
  Sender: FDA-Public Use
  Company Number: BR-ROCHE-356641

PATIENT
  Age: 54 Year
  Sex: Male

DRUGS (1)
  1. CLONAZEPAM [Suspect]
     Indication: ANXIETY
     Route: 048
     Dates: start: 19840615

REACTIONS (3)
  - DIABETES MELLITUS [None]
  - DRUG DEPENDENCE [None]
  - HYPOGLYCAEMIA [None]
